FAERS Safety Report 8449551-3 (Version None)
Quarter: 2012Q2

REPORT INFORMATION
  Report Type: 
  Country: None (occurrence: None)
  Receive Date: 20120620
  Receipt Date: 20120608
  Transmission Date: 20120825
  Serious: Yes (Other)
  Sender: FDA-Public Use
  Company Number: GR-AMGEN-GRCSP2012024029

PATIENT
  Sex: Female

DRUGS (5)
  1. PROLIA [Suspect]
     Indication: OSTEOPOROSIS
     Dosage: 60 MG, Q6MO
     Dates: start: 20120403
  2. CALCIUM [Concomitant]
     Indication: OSTEOPOROSIS
  3. VITAMINE D DCI [Concomitant]
     Indication: OSTEOPOROSIS
  4. CRESTOR [Concomitant]
     Indication: HYPERTENSION
     Dosage: UNK
  5. ATACAND [Concomitant]
     Indication: HYPERTENSION
     Dosage: UNK

REACTIONS (3)
  - PAIN IN EXTREMITY [None]
  - VARICOSE VEINS SUBLINGUAL [None]
  - TONGUE HAEMORRHAGE [None]
